FAERS Safety Report 5984807-5 (Version None)
Quarter: 2008Q4

REPORT INFORMATION
  Report Type: 
  Country: None (occurrence: None)
  Receive Date: 20081202
  Receipt Date: 20081124
  Transmission Date: 20090506
  Serious: Yes (Death, Hospitalization)
  Sender: FDA-Public Use
  Company Number: GXKR2008IN11216

PATIENT
  Age: 14 Year
  Sex: Female

DRUGS (3)
  1. ONDANSETRON [Suspect]
     Indication: ABDOMINAL PAIN
     Dosage: 4 MG, INTRAMUSCULAR
     Route: 030
  2. ONDANSETRON [Suspect]
     Indication: VOMITING
     Dosage: 4 MG, INTRAMUSCULAR
     Route: 030
  3. ANTACIDS (NO INGREDIENTS/SUBSTANCES) [Concomitant]

REACTIONS (7)
  - ALTERED STATE OF CONSCIOUSNESS [None]
  - COLD SWEAT [None]
  - DIZZINESS [None]
  - PULSE ABNORMAL [None]
  - SHOCK [None]
  - VENTRICULAR FIBRILLATION [None]
  - VENTRICULAR TACHYCARDIA [None]
